FAERS Safety Report 6572386-3 (Version None)
Quarter: 2010Q1

REPORT INFORMATION
  Report Type: 
  Country: None (occurrence: None)
  Receive Date: 20100205
  Receipt Date: 20100127
  Transmission Date: 20100710
  Serious: Yes (Other)
  Sender: FDA-Public Use
  Company Number: CA-SANOFI-AVENTIS-2010SA005267

PATIENT
  Age: 47 Year
  Sex: Female

DRUGS (4)
  1. TAXOTERE [Suspect]
     Indication: RECURRENT CANCER
     Route: 042
     Dates: start: 20090101
  2. TAXOTERE [Suspect]
  3. ANTINEOPLASTIC AGENTS [Suspect]
     Indication: RECURRENT CANCER
     Dates: start: 20090101
  4. ANTINEOPLASTIC AGENTS [Suspect]
     Dates: start: 20090101

REACTIONS (5)
  - ASCITES [None]
  - BLINDNESS [None]
  - JOINT SWELLING [None]
  - LACRIMATION INCREASED [None]
  - MACULAR OEDEMA [None]
